FAERS Safety Report 22976037 (Version 2)
Quarter: 2023Q4

REPORT INFORMATION
  Report Type: Spontaneous
  Country: CN (occurrence: CN)
  Receive Date: 20230925
  Receipt Date: 20231002
  Transmission Date: 20240110
  Serious: Yes (Hospitalization, Other)
  Sender: FDA-Public Use
  Company Number: CN-MLMSERVICE-20230830-4514757-1

PATIENT
  Age: 67 Year
  Sex: Male
  Weight: 63 kg

DRUGS (4)
  1. CISPLATIN [Suspect]
     Active Substance: CISPLATIN
     Indication: Sarcomatoid carcinoma of the lung
     Dosage: 40 MG D1-D3; Q21D
     Dates: start: 20210603, end: 20210806
  2. GEMCITABINE [Suspect]
     Active Substance: GEMCITABINE
     Indication: Sarcomatoid carcinoma of the lung
     Dosage: 2200 MG D1, D8; Q21D
     Dates: start: 20210603, end: 20210806
  3. SODIUM CHLORIDE [Concomitant]
     Active Substance: SODIUM CHLORIDE
     Dosage: STRENGTH: 0.9 %
  4. SODIUM CHLORIDE [Concomitant]
     Active Substance: SODIUM CHLORIDE
     Dosage: STRENGTH: 0.9 %

REACTIONS (5)
  - Myelosuppression [Recovering/Resolving]
  - Anaemia [Not Recovered/Not Resolved]
  - Pneumonia [Unknown]
  - Fatigue [Unknown]
  - Malnutrition [Unknown]

NARRATIVE: CASE EVENT DATE: 20210826
